FAERS Safety Report 14708842 (Version 4)
Quarter: 2018Q3

REPORT INFORMATION
  Report Type: Spontaneous
  Country: FR (occurrence: FR)
  Receive Date: 20180403
  Receipt Date: 20180904
  Transmission Date: 20181010
  Serious: Yes (Life-Threatening, Hospitalization)
  Sender: FDA-Public Use
  Company Number: FR-PFIZER INC-2018130808

PATIENT
  Age: 52 Year
  Sex: Male
  Weight: 54 kg

DRUGS (2)
  1. DOCETAXEL. [Suspect]
     Active Substance: DOCETAXEL
     Indication: PROSTATE CANCER METASTATIC
     Dosage: 75 MG/M2, EVERY 3 WEEKS
     Dates: start: 201604
  2. DOCETAXEL. [Suspect]
     Active Substance: DOCETAXEL
     Dosage: UNK (SECOND INJECTION)
     Dates: start: 201605

REACTIONS (2)
  - Myositis [Recovered/Resolved]
  - Fasciitis [Unknown]

NARRATIVE: CASE EVENT DATE: 201605
